APPROVED DRUG PRODUCT: NEOSPORIN
Active Ingredient: NEOMYCIN SULFATE; POLYMYXIN B SULFATE
Strength: EQ 3.5MG BASE/GM;10,000 UNITS/GM
Dosage Form/Route: CREAM;TOPICAL
Application: N050176 | Product #002
Applicant: GLAXOSMITHKLINE
Approved: Jan 14, 1985 | RLD: No | RS: No | Type: DISCN